FAERS Safety Report 18023862 (Version 1)
Quarter: 2020Q3

REPORT INFORMATION
  Report Type: Spontaneous
  Country: BR (occurrence: BR)
  Receive Date: 20200715
  Receipt Date: 20200715
  Transmission Date: 20201103
  Serious: Yes (Hospitalization, Other)
  Sender: FDA-Public Use
  Company Number: BR-SA-2020SA178903

PATIENT

DRUGS (1)
  1. MYOZYME [Suspect]
     Active Substance: ALGLUCOSIDASE ALFA
     Indication: GLYCOGEN STORAGE DISEASE TYPE II
     Dosage: 20 MG/KG, QW
     Route: 041

REACTIONS (4)
  - Disease progression [Unknown]
  - Dengue fever [Unknown]
  - Endotracheal intubation [Unknown]
  - Respiratory distress [Unknown]

NARRATIVE: CASE EVENT DATE: 2020
